FAERS Safety Report 25401717 (Version 1)
Quarter: 2025Q2

REPORT INFORMATION
  Report Type: Spontaneous
  Country: US (occurrence: None)
  Receive Date: 20250603
  Receipt Date: 20250603
  Transmission Date: 20250717
  Serious: Yes (Hospitalization)
  Sender: FDA-CTU
  Company Number: None

PATIENT
  Age: 82 Year
  Sex: Male
  Weight: 55 kg

DRUGS (1)
  1. APIXABAN [Suspect]
     Active Substance: APIXABAN
     Indication: Atrial fibrillation
     Dosage: FREQUENCY : TWICE A DAY;?
     Route: 048
     Dates: start: 20240726

REACTIONS (9)
  - Anaemia [None]
  - Haematemesis [None]
  - Melaena [None]
  - Asthenia [None]
  - Hypophagia [None]
  - Nausea [None]
  - Therapy cessation [None]
  - Barrett^s oesophagus [None]
  - Gastric mucosa erythema [None]

NARRATIVE: CASE EVENT DATE: 20250528
